FAERS Safety Report 20975994 (Version 2)
Quarter: 2022Q3

REPORT INFORMATION
  Report Type: Report from Study
  Country: CA (occurrence: CA)
  Receive Date: 20220617
  Receipt Date: 20220701
  Transmission Date: 20221027
  Serious: Yes (Death)
  Sender: FDA-Public Use
  Company Number: CA-NOVARTISPH-NVSC2022CA069645

PATIENT
  Sex: Female

DRUGS (2)
  1. TRAMETINIB [Suspect]
     Active Substance: TRAMETINIB
     Indication: Breast cancer metastatic
     Dosage: 1.5 MG, QD
     Route: 048
     Dates: end: 20220513
  2. DABRAFENIB [Suspect]
     Active Substance: DABRAFENIB
     Indication: Breast cancer metastatic
     Dosage: 100 MG, BID
     Route: 048
     Dates: end: 20220513

REACTIONS (4)
  - Breast cancer metastatic [Fatal]
  - Hepatic failure [Fatal]
  - Malignant neoplasm progression [Fatal]
  - Pyrexia [Unknown]
